FAERS Safety Report 8107404-4 (Version None)
Quarter: 2012Q1

REPORT INFORMATION
  Report Type: 
  Country: None (occurrence: None)
  Receive Date: 20120202
  Receipt Date: 20120130
  Transmission Date: 20120608
  Serious: Yes (Hospitalization)
  Sender: FDA-Public Use
  Company Number: FR-PFIZER INC-K201000909

PATIENT
  Age: 77 Year
  Sex: Female

DRUGS (16)
  1. ALTACE [Interacting]
     Dosage: 5 MG, 1X/DAY
  2. VALPROIC ACID [Concomitant]
     Dosage: 900 MG, 1X/DAY
  3. OLANZAPINE [Concomitant]
     Dosage: 5 MG, 1X/DAY
  4. AMLODIPINE [Interacting]
     Indication: HYPERTENSION
     Dosage: 5 MG, QAM
  5. AMLODIPINE [Interacting]
     Dosage: 10 MG, QAM
  6. HYDROCHLOROTHIAZIDE [Interacting]
     Indication: HYPERTENSION
     Dosage: 12.5 MG, 1X/DAY
  7. BISOPROLOL [Interacting]
     Indication: HYPERTENSION
     Dosage: 5 MG, 1X/DAY
  8. ALTACE [Interacting]
     Dosage: 2.5 MG, QAM
  9. AMLODIPINE [Interacting]
     Dosage: 5 MG, 1X/DAY
  10. PREGABALIN [Concomitant]
     Dosage: 150 MG, 1X/DAY
  11. CITALOPRAM [Concomitant]
     Indication: DEPRESSION
     Dosage: UNK
  12. BISOPROLOL [Interacting]
     Dosage: 2.5 MG, QAM
  13. BAYOTENSIN AKUT [Interacting]
     Indication: HYPERTENSION
     Dosage: UNK, PRN
  14. ALTACE [Suspect]
     Indication: HYPERTENSION
     Dosage: 5 MG, 2X/DAY
     Route: 048
  15. PROTHIPENDYL [Interacting]
     Indication: SLEEP DISORDER
     Dosage: 80 MG, 1X/DAY
  16. DONEPEZIL [Concomitant]
     Indication: COGNITIVE DISORDER
     Dosage: UNK

REACTIONS (5)
  - CEREBRAL DISORDER [None]
  - DRUG INTERACTION [None]
  - DYSARTHRIA [None]
  - SYNCOPE [None]
  - HYPOTENSION [None]
